FAERS Safety Report 17060586 (Version 1)
Quarter: 2019Q4

REPORT INFORMATION
  Report Type: Report from Study
  Country: ES (occurrence: ES)
  Receive Date: 20191121
  Receipt Date: 20191121
  Transmission Date: 20200122
  Serious: Yes (Other)
  Sender: FDA-Public Use
  Company Number: ES-MYLANLABS-2019M1111301

PATIENT
  Sex: Female

DRUGS (1)
  1. LEVETIRACETAM. [Suspect]
     Active Substance: LEVETIRACETAM
     Indication: EPILEPSY
     Dosage: DAILY DOSE FIRST TRIMESTER : 2000 MG MONOTHERAPY

REACTIONS (2)
  - Stillbirth [Recovered/Resolved]
  - Maternal exposure during pregnancy [Recovered/Resolved]
